FAERS Safety Report 24587376 (Version 2)
Quarter: 2024Q4

REPORT INFORMATION
  Report Type: Spontaneous
  Country: IN (occurrence: IN)
  Receive Date: 20241107
  Receipt Date: 20241115
  Transmission Date: 20250115
  Serious: Yes (Hospitalization)
  Sender: ROCHE
  Company Number: IN-ROCHE-3557057

PATIENT
  Age: 67 Year
  Sex: Male

DRUGS (2)
  1. TECENTRIQ [Suspect]
     Active Substance: ATEZOLIZUMAB
     Indication: Tongue neoplasm malignant stage unspecified
     Route: 042
     Dates: start: 20240409
  2. AVASTIN [Suspect]
     Active Substance: BEVACIZUMAB
     Indication: Tongue neoplasm malignant stage unspecified
     Route: 042
     Dates: start: 20240409

REACTIONS (5)
  - Off label use [Unknown]
  - Blood sodium decreased [Unknown]
  - Hypokalaemia [Unknown]
  - Fatigue [Unknown]
  - Asthenia [Unknown]
